FAERS Safety Report 4305270-6 (Version None)
Quarter: 2004Q1

REPORT INFORMATION
  Report Type: 
  Country: None (occurrence: None)
  Receive Date: 20040226
  Receipt Date: 20030114
  Transmission Date: 20041129
  Serious: No
  Sender: FDA-Public Use
  Company Number: US-BRISTOL-MYERS SQUIBB COMPANY-12158432

PATIENT
  Age: 52 Year
  Sex: Female
  Weight: 87 kg

DRUGS (9)
  1. TAXOL [Suspect]
     Indication: BREAST CANCER
     Route: 042
     Dates: start: 20020131, end: 20020508
  2. HERCEPTIN [Concomitant]
  3. BENADRYL [Concomitant]
     Indication: PREMEDICATION
     Route: 042
  4. PEPCID [Concomitant]
     Indication: PREMEDICATION
     Route: 042
  5. DEXAMETHASONE [Concomitant]
     Indication: PREMEDICATION
     Route: 042
  6. COMPAZINE [Concomitant]
     Indication: PREMEDICATION
     Route: 048
  7. TYLENOL (CAPLET) [Concomitant]
     Indication: PREMEDICATION
     Route: 048
  8. VIOXX [Concomitant]
  9. COUMADIN [Concomitant]

REACTIONS (1)
  - NAIL DISCOLOURATION [None]
